FAERS Safety Report 24291131 (Version 4)
Quarter: 2024Q3

REPORT INFORMATION
  Report Type: Spontaneous
  Country: SI (occurrence: SI)
  Receive Date: 20240906
  Receipt Date: 20240917
  Transmission Date: 20241017
  Serious: Yes (Death, Hospitalization, Other)
  Sender: MERCK
  Company Number: SI-009507513-2409SVN000741

PATIENT
  Age: 43 Year
  Sex: Female

DRUGS (3)
  1. PEMBROLIZUMAB [Suspect]
     Active Substance: PEMBROLIZUMAB
     Indication: Triple negative breast cancer
     Dosage: 200 MILLIGRAM, Q3W
     Dates: start: 20230221, end: 20230627
  2. PACLITAXEL [Suspect]
     Active Substance: PACLITAXEL
     Indication: Triple negative breast cancer
  3. CARBOPLATIN [Suspect]
     Active Substance: CARBOPLATIN
     Indication: Triple negative breast cancer

REACTIONS (17)
  - Malignant neoplasm progression [Fatal]
  - Immune-mediated encephalitis [Fatal]
  - Confusional state [Unknown]
  - Disorientation [Unknown]
  - Meningioma malignant [Unknown]
  - Headache [Unknown]
  - Apnoea [Unknown]
  - Unresponsive to stimuli [Unknown]
  - Altered state of consciousness [Unknown]
  - CSF protein increased [Unknown]
  - Pupil fixed [Unknown]
  - Immunoglobulins abnormal [Unknown]
  - Myalgia [Unknown]
  - Bone pain [Unknown]
  - Nausea [Unknown]
  - Vomiting [Unknown]
  - Pleocytosis [Unknown]

NARRATIVE: CASE EVENT DATE: 20230701
